FAERS Safety Report 7442015-5 (Version None)
Quarter: 2011Q2

REPORT INFORMATION
  Report Type: 
  Country: None (occurrence: None)
  Receive Date: 20110428
  Receipt Date: 20101213
  Transmission Date: 20111010
  Serious: Yes (Hospitalization)
  Sender: FDA-Public Use
  Company Number: US-BAYER-201039889NA

PATIENT
  Age: 38 Year
  Sex: Female
  Weight: 100 kg

DRUGS (4)
  1. OCELLA [Suspect]
     Dates: start: 20090101, end: 20100315
  2. YASMIN [Suspect]
     Indication: CONTRACEPTION
     Route: 048
     Dates: start: 20070401, end: 20090101
  3. IBUPROFEN [Concomitant]
     Indication: PAIN
  4. ZANTAC [Concomitant]

REACTIONS (8)
  - ABDOMINAL PAIN [None]
  - VOMITING [None]
  - CHOLELITHIASIS [None]
  - PROCEDURAL PAIN [None]
  - DYSPEPSIA [None]
  - GALLBLADDER CHOLESTEROLOSIS [None]
  - CHOLECYSTITIS CHRONIC [None]
  - NAUSEA [None]
